FAERS Safety Report 16558959 (Version 2)
Quarter: 2020Q3

REPORT INFORMATION
  Report Type: Report from Study
  Country: PL (occurrence: PL)
  Receive Date: 20190711
  Receipt Date: 20190726
  Transmission Date: 20201105
  Serious: Yes (Hospitalization)
  Sender: FDA-Public Use
  Company Number: PL-JNJFOC-20190703171

PATIENT
  Age: 59 Year
  Sex: Male

DRUGS (20)
  1. CEFTAZIDIME                        /00559702/ [Concomitant]
     Route: 042
  2. ACETYLCYSTEINE. [Concomitant]
     Active Substance: ACETYLCYSTEINE
     Route: 042
  3. CLEXANE [Concomitant]
     Active Substance: ENOXAPARIN SODIUM
     Route: 058
  4. HYDROXYZINUM                       /00058401/ [Concomitant]
  5. LEVOFLOXACINUM [Concomitant]
     Active Substance: LEVOFLOXACIN
     Route: 048
  6. SODIUM CHLORIDE. [Concomitant]
     Active Substance: SODIUM CHLORIDE
     Route: 042
  7. PANTOPRAZOLUM [Concomitant]
     Active Substance: PANTOPRAZOLE
     Route: 048
  8. PARACETAMOLUM [Concomitant]
     Active Substance: ACETAMINOPHEN
     Route: 042
  9. VENETOCLAX. [Suspect]
     Active Substance: VENETOCLAX
     Indication: MANTLE CELL LYMPHOMA
     Route: 065
     Dates: start: 20190109, end: 20190627
  10. IBRUTINIB [Suspect]
     Active Substance: IBRUTINIB
     Indication: MANTLE CELL LYMPHOMA
     Route: 048
     Dates: start: 20190109, end: 20190624
  11. POTASSIUM CHLORIDE. [Concomitant]
     Active Substance: POTASSIUM CHLORIDE
  12. AMOXICILLINUM [Concomitant]
     Route: 042
  13. NEBIVOLOLUM [Concomitant]
  14. AMOXICILLIN. [Concomitant]
     Active Substance: AMOXICILLIN
     Dosage: 1X1 FOR 5 DAYS
  15. KETOPROFENUM [Concomitant]
     Route: 042
  16. METRONIDAZOLUM [Concomitant]
     Route: 042
  17. SACCHAROMYCES BOULARDII [Concomitant]
     Active Substance: SACCHAROMYCES CEREVISIAE
     Route: 048
  18. ENOXAPARIN SODIUM. [Concomitant]
     Active Substance: ENOXAPARIN SODIUM
     Route: 058
  19. NATRIUM CHLORATUM BAXTER [Concomitant]
     Route: 042
  20. AUGMENTIN [Concomitant]
     Active Substance: AMOXICILLIN\CLAVULANATE POTASSIUM
     Dosage: 2X1 FOR 7 DAYS

REACTIONS (2)
  - Infectious pleural effusion [Recovered/Resolved]
  - Pneumonia streptococcal [Recovered/Resolved]

NARRATIVE: CASE EVENT DATE: 20190627
